FAERS Safety Report 25932445 (Version 1)
Quarter: 2025Q4

REPORT INFORMATION
  Report Type: Spontaneous
  Country: US (occurrence: US)
  Receive Date: 20251017
  Receipt Date: 20251017
  Transmission Date: 20260117
  Serious: Yes (Hospitalization, Other)
  Sender: MERCK SHARP & DOHME LLC
  Company Number: US-009507513-2336103

PATIENT
  Age: 65 Year
  Sex: Male

DRUGS (3)
  1. KEYTRUDA [Suspect]
     Active Substance: PEMBROLIZUMAB
     Indication: Metastatic malignant melanoma
     Dosage: 400MG EVERY 6 WEEKS
     Dates: start: 202412, end: 20250715
  2. ZYPREXA [Suspect]
     Active Substance: OLANZAPINE
     Indication: Nausea
  3. PREDNISONE [Concomitant]
     Active Substance: PREDNISONE

REACTIONS (23)
  - Meningitis aseptic [Not Recovered/Not Resolved]
  - Pain in extremity [Not Recovered/Not Resolved]
  - Diarrhoea [Not Recovered/Not Resolved]
  - Constipation [Not Recovered/Not Resolved]
  - Loss of libido [Not Recovered/Not Resolved]
  - Swelling [Not Recovered/Not Resolved]
  - Abdominal distension [Not Recovered/Not Resolved]
  - Weight increased [Not Recovered/Not Resolved]
  - Gait disturbance [Not Recovered/Not Resolved]
  - Movement disorder [Not Recovered/Not Resolved]
  - Amnesia [Not Recovered/Not Resolved]
  - Arthritis [Not Recovered/Not Resolved]
  - Thyroid disorder [Not Recovered/Not Resolved]
  - Agitation [Not Recovered/Not Resolved]
  - Paranoia [Not Recovered/Not Resolved]
  - Speech disorder [Not Recovered/Not Resolved]
  - Memory impairment [Not Recovered/Not Resolved]
  - Pain [Not Recovered/Not Resolved]
  - Flatulence [Not Recovered/Not Resolved]
  - Pain in extremity [Not Recovered/Not Resolved]
  - Drug hypersensitivity [Not Recovered/Not Resolved]
  - Hospitalisation [Recovered/Resolved]
  - Hyperaesthesia [Not Recovered/Not Resolved]

NARRATIVE: CASE EVENT DATE: 20241201
